FAERS Safety Report 6084238-6 (Version None)
Quarter: 2009Q1

REPORT INFORMATION
  Report Type: 
  Country: None (occurrence: None)
  Receive Date: 20090219
  Receipt Date: 20090212
  Transmission Date: 20090719
  Serious: Yes (Hospitalization, Other)
  Sender: FDA-Public Use
  Company Number: US-ELI_LILLY_AND_COMPANY-US200902002749

PATIENT
  Sex: Female
  Weight: 128.35 kg

DRUGS (21)
  1. BYETTA [Suspect]
     Indication: TYPE 2 DIABETES MELLITUS
     Dosage: 5 UG, 2/D
     Route: 058
     Dates: start: 20050101, end: 20050101
  2. BYETTA [Suspect]
     Dosage: 10 UG, 2/D
     Route: 058
     Dates: start: 20050101, end: 20060101
  3. BYETTA [Suspect]
     Dosage: 5 UG, 2/D
     Route: 058
     Dates: start: 20081101, end: 20081201
  4. BYETTA [Suspect]
     Dosage: 10 UG, 2/D
     Route: 058
     Dates: start: 20081201
  5. CLARITIN [Concomitant]
     Indication: SINUS DISORDER
  6. NASONEX [Concomitant]
     Indication: SINUS DISORDER
     Route: 055
  7. METOPROLOL TARTRATE [Concomitant]
     Indication: BLOOD PRESSURE
     Dosage: 200 MG, DAILY (1/D)
  8. NORVASC [Concomitant]
     Indication: BLOOD PRESSURE
     Dosage: 10 MG, DAILY (1/D)
  9. DIOVAN [Concomitant]
     Indication: BLOOD PRESSURE
     Dosage: 320 MG, DAILY (1/D)
  10. GLIPIZIDE [Concomitant]
     Indication: TYPE 2 DIABETES MELLITUS
  11. KLOR-CON [Concomitant]
     Indication: BLOOD POTASSIUM DECREASED
  12. ASCORBIC ACID [Concomitant]
     Dosage: UNK, 2/D
  13. CALCIUM                                 /N/A/ [Concomitant]
     Dosage: 250 MG, UNK
  14. IRON [Concomitant]
  15. LASIX [Concomitant]
     Dosage: 40 MG, DAILY (1/D)
  16. SIMVASTATIN [Concomitant]
     Indication: BLOOD PRESSURE
     Dosage: 80 MG, DAILY (1/D)
  17. ASPIRIN [Concomitant]
     Dosage: 81 MG, UNK
  18. CENTRUM [Concomitant]
  19. POTASSIUM CHLORIDE [Concomitant]
     Indication: MUSCLE SPASMS
  20. PIOGLITAZONE [Concomitant]
     Indication: TYPE 2 DIABETES MELLITUS
  21. GLYBURIDE [Concomitant]
     Indication: TYPE 2 DIABETES MELLITUS

REACTIONS (7)
  - CEREBROVASCULAR ACCIDENT [None]
  - DYSARTHRIA [None]
  - DYSPNOEA [None]
  - MEMORY IMPAIRMENT [None]
  - OEDEMA PERIPHERAL [None]
  - SPEECH DISORDER [None]
  - WEIGHT DECREASED [None]
